FAERS Safety Report 8850888 (Version 1)
Quarter: 2012Q4

REPORT INFORMATION
  Report Type: 
  Country: US (occurrence: US)
  Receive Date: 20121019
  Receipt Date: 20121019
  Transmission Date: 20130627
  Serious: No
  Sender: FDA-Public Use
  Company Number: US-PFIZER INC-2012259370

PATIENT
  Age: 85 Year
  Sex: Male
  Weight: 90.7 kg

DRUGS (5)
  1. LIPITOR [Suspect]
     Indication: BLOOD CHOLESTEROL INCREASED
     Dosage: 10 mg, daily
     Dates: end: 201207
  2. ATORVASTATIN CALCIUM [Suspect]
     Indication: BLOOD CHOLESTEROL INCREASED
     Dosage: 25 mg, daily
     Dates: start: 201207, end: 201208
  3. HYDROCHLOROTHIAZIDE [Concomitant]
     Indication: HYPERTENSION
     Dosage: 25 mg, 2x/day
  4. DIOVAN (VALSARTAN) [Concomitant]
     Indication: HYPERTENSION
     Dosage: 80 mg, daily
  5. METOPROLOL [Concomitant]
     Indication: HYPERTENSION
     Dosage: 25 mg, 2x/day

REACTIONS (2)
  - Drug ineffective [Unknown]
  - Gait disturbance [Unknown]
